FAERS Safety Report 16655975 (Version 1)
Quarter: 2019Q3

REPORT INFORMATION
  Report Type: Spontaneous
  Country: US (occurrence: US)
  Receive Date: 20190801
  Receipt Date: 20190801
  Transmission Date: 20191004
  Serious: Yes (Other)
  Sender: FDA-Public Use
  Company Number: US-JNJFOC-20190733585

PATIENT
  Sex: Male

DRUGS (4)
  1. TREMFYA [Suspect]
     Active Substance: GUSELKUMAB
     Indication: PSORIASIS
     Dosage: PRESCRIPTION NUMBER: 57894064001
     Route: 058
     Dates: start: 20190208
  2. ALLOPURINOL. [Concomitant]
     Active Substance: ALLOPURINOL
  3. ATENOLOL. [Concomitant]
     Active Substance: ATENOLOL
  4. POTASSIUM CHLORIDE. [Concomitant]
     Active Substance: POTASSIUM CHLORIDE

REACTIONS (1)
  - Renal disorder [Unknown]

NARRATIVE: CASE EVENT DATE: 2019
